FAERS Safety Report 15574141 (Version 1)
Quarter: 2018Q4

REPORT INFORMATION
  Report Type: Spontaneous
  Country: RU (occurrence: RU)
  Receive Date: 20181101
  Receipt Date: 20181101
  Transmission Date: 20190205
  Serious: Yes (Other)
  Sender: FDA-Public Use
  Company Number: RU-TAKEDA-2018TEU006444

PATIENT
  Age: 46 Year
  Sex: Male
  Weight: 120 kg

DRUGS (6)
  1. DEXILANT [Suspect]
     Active Substance: DEXLANSOPRAZOLE
     Indication: EOSINOPHILIC OESOPHAGITIS
     Dosage: 60 MG, QD
     Route: 048
     Dates: start: 20181004, end: 20181011
  2. DEXILANT [Suspect]
     Active Substance: DEXLANSOPRAZOLE
     Indication: GASTRITIS EROSIVE
  3. ERMYTAL [Suspect]
     Active Substance: PANCRELIPASE
     Indication: GASTRITIS EROSIVE
  4. DEXILANT [Suspect]
     Active Substance: DEXLANSOPRAZOLE
     Indication: GASTRIC DISORDER
  5. ERMYTAL [Suspect]
     Active Substance: PANCRELIPASE
     Indication: GASTRIC DISORDER
  6. ERMYTAL [Suspect]
     Active Substance: PANCRELIPASE
     Indication: EOSINOPHILIC OESOPHAGITIS
     Dosage: 1000 IU, TID
     Route: 048
     Dates: start: 20181004, end: 20181011

REACTIONS (1)
  - Jaundice [Unknown]

NARRATIVE: CASE EVENT DATE: 20181007
